FAERS Safety Report 5495715-0 (Version None)
Quarter: 2007Q4

REPORT INFORMATION
  Report Type: 
  Country: None (occurrence: None)
  Receive Date: 20071025
  Receipt Date: 20071022
  Transmission Date: 20080405
  Serious: Yes (Death)
  Sender: FDA-Public Use
  Company Number: CN-NOVOPROD-268723

PATIENT
  Age: 73 Year
  Sex: Male
  Weight: 82 kg

DRUGS (1)
  1. NOVOLOG MIX 70/30 [Suspect]
     Indication: DIABETES MELLITUS
     Dosage: 24 IU, QD
     Route: 058
     Dates: start: 20070108, end: 20070408

REACTIONS (1)
  - DEATH [None]
